FAERS Safety Report 14926958 (Version 1)
Quarter: 2018Q2

REPORT INFORMATION
  Report Type: Spontaneous
  Country: US (occurrence: US)
  Receive Date: 20180523
  Receipt Date: 20180523
  Transmission Date: 20180711
  Serious: Yes (Hospitalization)
  Sender: FDA-Public Use
  Company Number: US-ASTELLAS-2018US023375

PATIENT
  Age: 62 Year
  Sex: Male

DRUGS (4)
  1. ACYCLOVIR                          /00587301/ [Interacting]
     Active Substance: ACYCLOVIR
     Dosage: 12.1 MG/KG, EVERY 12 HOURS
     Route: 042
  2. MYCOPHENOLATE MOFETIL. [Interacting]
     Active Substance: MYCOPHENOLATE MOFETIL
     Indication: RENAL TRANSPLANT
     Dosage: UNK, UNKNOWN FREQ.
     Route: 065
  3. TACROLIMUS. [Suspect]
     Active Substance: TACROLIMUS
     Indication: RENAL TRANSPLANT
     Dosage: UNK UNK, UNKNOWN FREQ.
     Route: 065
  4. ACYCLOVIR                          /00587301/ [Interacting]
     Active Substance: ACYCLOVIR
     Indication: VARICELLA ZOSTER VIRUS INFECTION
     Dosage: UNK UNK, UNKNOWN FREQ.
     Route: 042

REACTIONS (11)
  - Chronic allograft nephropathy [Recovering/Resolving]
  - Staphylococcal infection [Unknown]
  - Varicella zoster virus infection [Unknown]
  - Hydronephrosis [Unknown]
  - Nephropathy toxic [Recovering/Resolving]
  - Hypovolaemia [Unknown]
  - Colitis microscopic [Unknown]
  - Encephalitis [Unknown]
  - Neurotoxicity [Recovered/Resolved]
  - Drug interaction [Unknown]
  - Drug clearance decreased [Unknown]
